FAERS Safety Report 26198744 (Version 1)
Quarter: 2025Q4

REPORT INFORMATION
  Report Type: Report from Study
  Country: GB (occurrence: GB)
  Receive Date: 20251225
  Receipt Date: 20251225
  Transmission Date: 20260117
  Serious: Yes (Other)
  Sender: NOVARTIS
  Company Number: GB-002147023-NVSC2025GB154538

PATIENT
  Sex: Female

DRUGS (3)
  1. COSENTYX [Suspect]
     Active Substance: SECUKINUMAB
     Indication: Spinal osteoarthritis
     Dosage: 150 MG, QMO
     Route: 058
     Dates: start: 20250905
  2. COSENTYX [Suspect]
     Active Substance: SECUKINUMAB
     Dosage: 150 MG, QMO (SECOND INJECTION)
     Route: 058
  3. COSENTYX [Suspect]
     Active Substance: SECUKINUMAB
     Dosage: 150 MG, QMO (THIRD INJECTION)
     Route: 058

REACTIONS (4)
  - Lower respiratory tract infection [Unknown]
  - Ear infection [Unknown]
  - Pharyngitis [Unknown]
  - Urinary tract infection [Unknown]
